FAERS Safety Report 6313482-5 (Version None)
Quarter: 2009Q3

REPORT INFORMATION
  Report Type: 
  Country: None (occurrence: None)
  Receive Date: 20090814
  Receipt Date: 20090731
  Transmission Date: 20100115
  Serious: Yes (Hospitalization)
  Sender: FDA-Public Use
  Company Number: 6053447

PATIENT
  Age: 86 Year
  Sex: Female

DRUGS (13)
  1. LEVOTHYROXINE SODIUM [Suspect]
     Indication: DRUG USE FOR UNKNOWN INDICATION
     Dosage: ORAL
     Route: 048
  2. TEMERIT (NEBIVOLOL) [Suspect]
     Indication: DRUG USE FOR UNKNOWN INDICATION
     Dosage: ORAL
     Route: 048
  3. ATACAND [Suspect]
     Indication: DRUG USE FOR UNKNOWN INDICATION
     Dosage: ORAL
     Route: 048
     Dates: end: 20090622
  4. OFLOCET (OFLOXACIN) [Suspect]
     Indication: BACTERAEMIA
     Dosage: 400 MG (200 MG, 2 IN 1 D) ORAL
     Route: 048
     Dates: start: 20090610, end: 20090625
  5. RIFADIN [Suspect]
     Indication: BACTERAEMIA
     Dosage: 1200 MG (300 MG, 4 IN 1 D) ORAL
     Route: 048
     Dates: start: 20090610, end: 20090625
  6. ULTRACET [Suspect]
     Indication: DRUG USE FOR UNKNOWN INDICATION
     Dosage: ORAL
     Route: 048
  7. POTASSIUM CHLORIDE [Concomitant]
  8. DIGOXIN [Concomitant]
  9. PREVISCAN (FLUINDIONE) [Concomitant]
  10. LORAZEPAM [Concomitant]
  11. TRANDOLAPRIL [Concomitant]
  12. ALDACTONE [Concomitant]
  13. CORDARONE [Concomitant]

REACTIONS (13)
  - ANAEMIA HAEMOLYTIC AUTOIMMUNE [None]
  - APHASIA [None]
  - ASTHENIA [None]
  - ATRIAL FIBRILLATION [None]
  - CONVULSION [None]
  - COOMBS DIRECT TEST POSITIVE [None]
  - DEPRESSED LEVEL OF CONSCIOUSNESS [None]
  - DISORIENTATION [None]
  - DRUG LEVEL INCREASED [None]
  - EPISTAXIS [None]
  - HAEMORRHAGE [None]
  - HAPTOGLOBIN DECREASED [None]
  - HEAD DEFORMITY [None]
